FAERS Safety Report 7222561-X (Version None)
Quarter: 2011Q1

REPORT INFORMATION
  Report Type: 
  Country: None (occurrence: None)
  Receive Date: 20110112
  Receipt Date: 20110111
  Transmission Date: 20110831
  Serious: Yes (Hospitalization)
  Sender: FDA-Public Use
  Company Number: JP-PFIZER INC-JP-WYE-H18104210

PATIENT
  Age: 82 Year
  Sex: Female
  Weight: 46 kg

DRUGS (1)
  1. ZOSYN [Suspect]
     Dosage: 4.5 G, 3X/DAY
     Route: 041
     Dates: start: 20100929, end: 20100930

REACTIONS (3)
  - FEELING HOT [None]
  - LISTLESS [None]
  - HEPATIC FAILURE [None]
